FAERS Safety Report 10998847 (Version 2)
Quarter: 2016Q3

REPORT INFORMATION
  Report Type: Spontaneous
  Country: US (occurrence: US)
  Receive Date: 20150408
  Receipt Date: 20160921
  Transmission Date: 20161109
  Serious: Yes (Other)
  Sender: FDA-Public Use
  Company Number: US-SA-2014SA053888

PATIENT
  Age: 76 Year
  Sex: Female

DRUGS (1)
  1. ALLEGRA [Suspect]
     Active Substance: FEXOFENADINE HYDROCHLORIDE
     Indication: MULTIPLE ALLERGIES
     Dosage: TAKEN FROM- LONG TIME
     Route: 048

REACTIONS (6)
  - Irritability [Unknown]
  - Nervousness [Unknown]
  - Dry mouth [Unknown]
  - Abnormal behaviour [Unknown]
  - Inappropriate schedule of drug administration [Unknown]
  - Dementia [Unknown]
